FAERS Safety Report 6941915-X (Version None)
Quarter: 2010Q3

REPORT INFORMATION
  Report Type: 
  Country: None (occurrence: None)
  Receive Date: 20100826
  Receipt Date: 20100824
  Transmission Date: 20110219
  Serious: Yes (Hospitalization)
  Sender: FDA-Public Use
  Company Number: FR-WYE-G06577810

PATIENT
  Sex: Male

DRUGS (12)
  1. EFFEXOR XR [Suspect]
     Route: 048
  2. SYMBICORT [Concomitant]
     Route: 048
  3. ATACAND [Concomitant]
     Route: 048
  4. DIGOXIN [Concomitant]
     Route: 048
  5. ZOLPIDEM [Concomitant]
     Route: 048
  6. RAMIPRIL [Concomitant]
     Route: 048
  7. SPIRIVA [Concomitant]
     Route: 055
  8. ALLOPURINOL [Concomitant]
     Route: 048
  9. OMIX [Concomitant]
     Route: 048
  10. RABEPRAZOLE SODIUM [Concomitant]
     Route: 048
  11. COUMADIN [Suspect]
     Route: 048
  12. DILTIAZEM [Concomitant]
     Route: 048

REACTIONS (2)
  - ACUTE RESPIRATORY FAILURE [None]
  - EPISTAXIS [None]
